FAERS Safety Report 10575276 (Version 3)
Quarter: 2014Q4

REPORT INFORMATION
  Report Type: Spontaneous
  Country: GB (occurrence: None)
  Receive Date: 20141107
  Receipt Date: 20141212
  Transmission Date: 20150529
  Serious: Yes (Other)
  Sender: FDA-Public Use
  Company Number: 2014GR_BP007634

PATIENT
  Age: 72 Year
  Sex: Male

DRUGS (3)
  1. ALFUZOSIN [Concomitant]
     Active Substance: ALFUZOSIN
  2. FINASTERIDE (FINASTERIDE) [Suspect]
     Active Substance: FINASTERIDE
     Indication: PROSTATIC SPECIFIC ANTIGEN INCREASED
  3. DUTASTERIDE. [Suspect]
     Active Substance: DUTASTERIDE
     Indication: BENIGN PROSTATIC HYPERPLASIA

REACTIONS (1)
  - Floppy iris syndrome [None]
